FAERS Safety Report 4986972-5 (Version None)
Quarter: 2006Q2

REPORT INFORMATION
  Report Type: 
  Country: None (occurrence: None)
  Receive Date: 20060428
  Receipt Date: 20060428
  Transmission Date: 20061013
  Serious: Yes (Hospitalization)
  Sender: FDA-Public Use
  Company Number: None

PATIENT
  Age: 60 Year
  Sex: Male
  Weight: 76.6579 kg

DRUGS (11)
  1. METHOTREXATE [Suspect]
     Indication: RHEUMATOID ARTHRITIS
     Dosage: 25 MG ONCE A WEEK SQ
     Route: 058
     Dates: start: 20060202, end: 20060404
  2. PREDNISONE TAB [Concomitant]
  3. HYDROCHLOROTHIAZIDE [Concomitant]
  4. CITALOPRAM HYDROBROMIDE [Concomitant]
  5. CYCLOBENZAPRINE HCL [Concomitant]
  6. HYDROXYCHLOROQUINE SULFATE [Concomitant]
  7. IBUPROFEN [Concomitant]
  8. LISINOPRIL [Concomitant]
  9. METHOTREXATE [Concomitant]
  10. OMEPRAZOLE [Concomitant]
  11. TRAMADOL HCL [Concomitant]

REACTIONS (8)
  - ANAEMIA OF CHRONIC DISEASE [None]
  - BLOOD AMYLASE INCREASED [None]
  - DIZZINESS [None]
  - FATIGUE [None]
  - INFLAMMATION [None]
  - IRON DEFICIENCY [None]
  - LIPASE INCREASED [None]
  - PLATELET PRODUCTION DECREASED [None]
